FAERS Safety Report 4887107-X (Version None)
Quarter: 2006Q1

REPORT INFORMATION
  Report Type: 
  Country: None (occurrence: None)
  Receive Date: 20060120
  Receipt Date: 20051005
  Transmission Date: 20060701
  Serious: Yes (Hospitalization, Disabling)
  Sender: FDA-Public Use
  Company Number: US-MERCK-0510USA03470

PATIENT
  Age: 35 Year
  Sex: Female
  Weight: 101 kg

DRUGS (10)
  1. VIOXX [Suspect]
     Indication: PAIN
     Route: 048
  2. VIOXX [Suspect]
     Indication: INTERVERTEBRAL DISC PROTRUSION
     Route: 048
  3. FLEXERIL [Concomitant]
     Route: 048
  4. ACETAMINOPHEN AND OXYCODONE HYDROCHLORIDE [Concomitant]
     Route: 065
  5. HYDROCODONE BITARTRATE + ACETAMINOPHEN [Concomitant]
     Route: 065
  6. HYDROCHLOROTHIAZIDE [Concomitant]
     Indication: CARDIAC DISORDER
     Route: 065
  7. TOPROL-XL [Concomitant]
     Indication: CARDIAC DISORDER
     Route: 065
  8. NORVASC [Concomitant]
     Indication: CARDIAC DISORDER
     Route: 065
  9. NITROLINGUAL [Concomitant]
     Indication: CARDIAC DISORDER
     Route: 065
  10. YASMIN [Concomitant]
     Indication: CONTRACEPTION
     Route: 065

REACTIONS (5)
  - ANGINA PECTORIS [None]
  - ARTERIOSPASM CORONARY [None]
  - INTERVERTEBRAL DISC PROTRUSION [None]
  - MYOCARDIAL INFARCTION [None]
  - TOOTH DISORDER [None]
